FAERS Safety Report 10789381 (Version 1)
Quarter: 2015Q1

REPORT INFORMATION
  Report Type: Spontaneous
  Country: US (occurrence: US)
  Receive Date: 20150212
  Receipt Date: 20150212
  Transmission Date: 20150721
  Serious: Yes (Other)
  Sender: FDA-Public Use
  Company Number: US-RB-073090-15

PATIENT
  Age: 14 Year
  Sex: Female

DRUGS (1)
  1. MUCINEX DM MAXIMUM STRENGTH [Suspect]
     Active Substance: DEXTROMETHORPHAN HYDROBROMIDE\GUAIFENESIN
     Indication: INTENTIONAL SELF-INJURY
     Dosage: TOOK 3 TABLETS AT ONCE (INTENTIONALLY)
     Route: 065
     Dates: start: 20150203

REACTIONS (3)
  - Feeling abnormal [Not Recovered/Not Resolved]
  - Intentional overdose [Unknown]
  - Drug abuse [Unknown]

NARRATIVE: CASE EVENT DATE: 20150203
